FAERS Safety Report 4389707-2 (Version None)
Quarter: 2004Q2

REPORT INFORMATION
  Report Type: 
  Country: None (occurrence: None)
  Receive Date: 20040629
  Receipt Date: 20031016
  Transmission Date: 20050107
  Serious: Yes (Other)
  Sender: FDA-Public Use
  Company Number: US-JNJFOC-20030806055

PATIENT
  Age: 53 Year
  Sex: Female

DRUGS (3)
  1. DURAGESIC [Suspect]
     Indication: PAIN
     Dosage: 25 UG/HR, 1 IN 72 HOUR, TRANSDERMAL : 50 UG/HR, 1 IN 72 HOUR, TRANSDERMAL : 25 UG/HR, TRANSDERMAL
     Route: 062
     Dates: start: 20010801, end: 20020601
  2. DURAGESIC [Suspect]
     Indication: PAIN
     Dosage: 25 UG/HR, 1 IN 72 HOUR, TRANSDERMAL : 50 UG/HR, 1 IN 72 HOUR, TRANSDERMAL : 25 UG/HR, TRANSDERMAL
     Route: 062
     Dates: start: 20020601, end: 20020601
  3. DURAGESIC [Suspect]
     Indication: PAIN
     Dosage: 25 UG/HR, 1 IN 72 HOUR, TRANSDERMAL : 50 UG/HR, 1 IN 72 HOUR, TRANSDERMAL : 25 UG/HR, TRANSDERMAL
     Route: 062
     Dates: start: 20020601

REACTIONS (4)
  - DRUG WITHDRAWAL SYNDROME [None]
  - NAUSEA [None]
  - VOMITING [None]
  - WEIGHT DECREASED [None]
